FAERS Safety Report 6232400-1 (Version None)
Quarter: 2009Q2

REPORT INFORMATION
  Report Type: 
  Country: None (occurrence: None)
  Receive Date: 20090617
  Receipt Date: 20090609
  Transmission Date: 20091009
  Serious: Yes (Other)
  Sender: FDA-Public Use
  Company Number: PHHY2008BE11493

PATIENT
  Sex: Female

DRUGS (1)
  1. ZOLEDRONIC ACID [Suspect]
     Indication: METASTASES TO BONE
     Dosage: 4 MG
     Route: 042
     Dates: start: 20050314, end: 20080331

REACTIONS (9)
  - BONE DISORDER [None]
  - HYPERAEMIA [None]
  - IMPAIRED HEALING [None]
  - LIGAMENT DISORDER [None]
  - LOOSE TOOTH [None]
  - OSTEONECROSIS [None]
  - TOOTH AVULSION [None]
  - TOOTH LOSS [None]
  - TOOTHACHE [None]
